FAERS Safety Report 6487976-6 (Version None)
Quarter: 2009Q4

REPORT INFORMATION
  Report Type: 
  Country: None (occurrence: None)
  Receive Date: 20091209
  Receipt Date: 20091209
  Transmission Date: 20100525
  Serious: Yes (Hospitalization)
  Sender: FDA-Public Use
  Company Number: None

PATIENT
  Age: 75 Year
  Sex: Male
  Weight: 84.8 kg

DRUGS (2)
  1. WARFARIN SODIUM [Suspect]
     Indication: ATRIAL FIBRILLATION
     Dates: start: 20071215
  2. WARFARIN SODIUM [Suspect]
     Indication: SUPERIOR VENA CAVAL OCCLUSION
     Dates: start: 20071215

REACTIONS (2)
  - GASTRIC HAEMORRHAGE [None]
  - ULCER [None]
